FAERS Safety Report 6471642-7 (Version None)
Quarter: 2009Q4

REPORT INFORMATION
  Report Type: 
  Country: None (occurrence: None)
  Receive Date: 20091203
  Receipt Date: 20080506
  Transmission Date: 20100525
  Serious: Yes (Hospitalization)
  Sender: FDA-Public Use
  Company Number: US-ELI_LILLY_AND_COMPANY-US200803004465

PATIENT
  Sex: Female
  Weight: 63.492 kg

DRUGS (8)
  1. BYETTA [Suspect]
     Indication: TYPE 2 DIABETES MELLITUS
     Dosage: 5 UG, 2/D
     Route: 058
     Dates: start: 20050101, end: 20071228
  2. BYETTA [Suspect]
     Dosage: 10 UG, 2/D
     Route: 058
     Dates: start: 20071228, end: 20080101
  3. BYETTA [Suspect]
     Dosage: 5 UG, 2/D
     Route: 058
     Dates: start: 20080201
  4. BYETTA [Suspect]
     Dosage: 5 UG, 2/D
     Route: 058
     Dates: start: 20080501
  5. AVANDIA [Concomitant]
  6. AMARYL [Concomitant]
  7. PRECOSE [Concomitant]
  8. ACTOS [Concomitant]

REACTIONS (24)
  - ANORECTAL DISORDER [None]
  - ANXIETY [None]
  - BLADDER DISORDER [None]
  - BLOOD GLUCOSE INCREASED [None]
  - CATARACT [None]
  - DYSPNOEA [None]
  - GROIN PAIN [None]
  - HOSPITALISATION [None]
  - INJURY [None]
  - LYMPHADENOPATHY [None]
  - MALAISE [None]
  - MENTAL DISORDER [None]
  - MUSCLE SPASMS [None]
  - OEDEMA PERIPHERAL [None]
  - PAIN [None]
  - PERIPHERAL ARTERIAL OCCLUSIVE DISEASE [None]
  - POOR PERIPHERAL CIRCULATION [None]
  - SPINAL COLUMN INJURY [None]
  - STRESS [None]
  - THINKING ABNORMAL [None]
  - VAGINAL INFECTION [None]
  - VISION BLURRED [None]
  - VISUAL ACUITY REDUCED [None]
  - WEIGHT DECREASED [None]
